FAERS Safety Report 6613940-X (Version None)
Quarter: 2010Q1

REPORT INFORMATION
  Report Type: 
  Country: None (occurrence: None)
  Receive Date: 20100304
  Receipt Date: 20100224
  Transmission Date: 20100710
  Serious: Yes (Death)
  Sender: FDA-Public Use
  Company Number: B0636328A

PATIENT
  Sex: Male
  Weight: 80 kg

DRUGS (1)
  1. ARIXTRA [Suspect]
     Dosage: 7.5MG PER DAY
     Route: 058
     Dates: start: 20100205, end: 20100222

REACTIONS (5)
  - CEREBRAL HAEMATOMA [None]
  - EPISTAXIS [None]
  - HAEMORRHAGIC STROKE [None]
  - OFF LABEL USE [None]
  - VOMITING [None]
